FAERS Safety Report 13738075 (Version 1)
Quarter: 2017Q3

REPORT INFORMATION
  Report Type: Spontaneous
  Country: FR (occurrence: FR)
  Receive Date: 20170710
  Receipt Date: 20170710
  Transmission Date: 20171127
  Serious: Yes (Disabling)
  Sender: FDA-Public Use
  Company Number: FR-SA-2017SA120056

PATIENT
  Age: 31 Year
  Sex: Female

DRUGS (2)
  1. LOVENOX [Suspect]
     Active Substance: ENOXAPARIN SODIUM
     Indication: PULMONARY EMBOLISM
     Route: 058
     Dates: start: 20160408, end: 201701
  2. LOVENOX [Suspect]
     Active Substance: ENOXAPARIN SODIUM
     Indication: THROMBOSIS PROPHYLAXIS
     Route: 058
     Dates: start: 20160303, end: 20160408

REACTIONS (2)
  - Exposure during pregnancy [Unknown]
  - Spinal compression fracture [Recovered/Resolved with Sequelae]

NARRATIVE: CASE EVENT DATE: 201701
